FAERS Safety Report 25462987 (Version 2)
Quarter: 2025Q3

REPORT INFORMATION
  Report Type: Spontaneous
  Country: JP (occurrence: JP)
  Receive Date: 20250620
  Receipt Date: 20250707
  Transmission Date: 20251020
  Serious: Yes (Death, Other)
  Sender: OTSUKA
  Company Number: JP-MMM-Otsuka-W39AZPL2

PATIENT
  Age: 8 Decade
  Sex: Female

DRUGS (1)
  1. ABILIFY MAINTENA [Suspect]
     Active Substance: ARIPIPRAZOLE
     Indication: Product used for unknown indication
     Route: 030

REACTIONS (1)
  - Death [Fatal]
